FAERS Safety Report 5939144-1 (Version None)
Quarter: 2008Q4

REPORT INFORMATION
  Report Type: 
  Country: None (occurrence: None)
  Receive Date: 20081103
  Receipt Date: 20081022
  Transmission Date: 20090506
  Serious: Yes (Death, Hospitalization)
  Sender: FDA-Public Use
  Company Number: GB-PFIZER INC-2008089495

PATIENT
  Sex: Male

DRUGS (2)
  1. SILDENAFIL CITRATE [Suspect]
     Route: 048
  2. EPOPROSTENOL SODIUM [Suspect]
     Dosage: TEXT:20NG/KG/MIN
     Route: 042

REACTIONS (4)
  - PULMONARY HYPERTENSION [None]
  - PULMONARY OEDEMA [None]
  - PULMONARY VENO-OCCLUSIVE DISEASE [None]
  - RIGHT VENTRICULAR FAILURE [None]
